FAERS Safety Report 8378172-6 (Version None)
Quarter: 2012Q2

REPORT INFORMATION
  Report Type: 
  Country: None (occurrence: None)
  Receive Date: 20120522
  Receipt Date: 20120521
  Transmission Date: 20120825
  Serious: Yes (Other)
  Sender: FDA-Public Use
  Company Number: US-PFIZER INC-2012122963

PATIENT
  Sex: Female
  Weight: 68.027 kg

DRUGS (12)
  1. CHANTIX [Suspect]
     Indication: SMOKING CESSATION THERAPY
     Dosage: 0.5 MG, 1X/DAY
     Route: 048
     Dates: start: 20100701, end: 20101201
  2. NEXIUM [Concomitant]
     Dosage: UNK
  3. EFFEXOR [Concomitant]
     Dosage: UNK
  4. ACETYLSALICYLIC ACID [Concomitant]
     Dosage: TWO ASPIRIN, 1X/DAY
  5. CARAFATE [Concomitant]
     Dosage: UNK, 4X/DAY
  6. CYMBALTA [Concomitant]
     Dosage: UNK
  7. ATENOLOL [Concomitant]
     Indication: ATRIAL FIBRILLATION
     Dosage: UNK
  8. KLONOPIN [Concomitant]
     Dosage: UNK
  9. FENTANYL [Concomitant]
     Indication: NERVE COMPRESSION
     Dosage: UNK
  10. METHOTREXATE [Concomitant]
     Indication: MULTIPLE SCLEROSIS
  11. LEVOTHROID [Concomitant]
     Dosage: UNK
  12. METHOTREXATE [Concomitant]
     Indication: RHEUMATOID ARTHRITIS
     Dosage: UNK

REACTIONS (2)
  - WHITE BLOOD CELL COUNT DECREASED [None]
  - DEPRESSION [None]
